FAERS Safety Report 8275869-3 (Version None)
Quarter: 2012Q2

REPORT INFORMATION
  Report Type: 
  Country: None (occurrence: None)
  Receive Date: 20120412
  Receipt Date: 20120402
  Transmission Date: 20120825
  Serious: Yes (Hospitalization)
  Sender: FDA-Public Use
  Company Number: US-BAYER-201040346NA

PATIENT
  Age: 41 Year
  Sex: Female
  Weight: 108.84 kg

DRUGS (5)
  1. NAPROXEN (ALEVE) [Concomitant]
     Dosage: UNK
     Route: 048
     Dates: end: 20100712
  2. OMEPRAZOLE [Concomitant]
  3. YAZ [Suspect]
     Indication: PREMENSTRUAL SYNDROME
     Route: 048
     Dates: start: 20100101, end: 20100701
  4. ZITHROMAX [Concomitant]
     Indication: OROPHARYNGEAL PAIN
     Dosage: UNK
     Dates: start: 20100501
  5. TYLENOL (CAPLET) [Concomitant]

REACTIONS (3)
  - PNEUMOTHORAX [None]
  - PULMONARY EMBOLISM [None]
  - PAIN [None]
